FAERS Safety Report 9592359 (Version 2)
Quarter: 2013Q4

REPORT INFORMATION
  Report Type: Spontaneous
  Country: US (occurrence: US)
  Receive Date: 20131004
  Receipt Date: 20131101
  Transmission Date: 20140711
  Serious: Yes (Other)
  Sender: FDA-Public Use
  Company Number: US-TEVA-435985USA

PATIENT
  Age: 30 Year
  Sex: Female
  Weight: 113.5 kg

DRUGS (5)
  1. PARAGARD 380A [Suspect]
     Indication: CONTRACEPTION
     Route: 015
     Dates: start: 20130515, end: 20131001
  2. SOMA [Concomitant]
  3. PRILOSEC [Concomitant]
     Indication: GASTRIC DISORDER
  4. PRENATAL VITAMINS [Concomitant]
     Indication: SUPPLEMENTATION THERAPY
  5. CLARITIN [Concomitant]
     Indication: HYPERSENSITIVITY

REACTIONS (1)
  - Device dislocation [Recovered/Resolved]
